FAERS Safety Report 9255909 (Version 1)
Quarter: 2013Q2

REPORT INFORMATION
  Report Type: Spontaneous
  Country: LU (occurrence: LU)
  Receive Date: 20130425
  Receipt Date: 20130425
  Transmission Date: 20140414
  Serious: Yes (Death, Life-Threatening, Hospitalization)
  Sender: FDA-Public Use
  Company Number: LU-B.I. PHARMACEUTICALS,INC./RIDGEFIELD-2013-BL-00154BL

PATIENT
  Age: 76 Year
  Sex: Female
  Weight: 50 kg

DRUGS (6)
  1. PRADAXA [Suspect]
     Indication: ATRIAL FIBRILLATION
     Dosage: 220 MG
     Dates: start: 201301
  2. CONCOR [Concomitant]
  3. LYRICA [Concomitant]
  4. LORAMET [Concomitant]
  5. COVERSYL [Concomitant]
  6. SERLAIN [Concomitant]

REACTIONS (3)
  - Melaena [Fatal]
  - Haematochezia [Fatal]
  - Wrong technique in drug usage process [Unknown]
